FAERS Safety Report 23123807 (Version 1)
Quarter: 2023Q4

REPORT INFORMATION
  Report Type: Report from Study
  Country: US (occurrence: US)
  Receive Date: 20231030
  Receipt Date: 20231030
  Transmission Date: 20240110
  Serious: Yes (Hospitalization)
  Sender: FDA-Public Use
  Company Number: US-Eisai-EC-2023-148964

PATIENT
  Age: 85 Year
  Sex: Female

DRUGS (1)
  1. LENVIMA [Suspect]
     Active Substance: LENVATINIB
     Indication: Endometrial cancer
     Route: 048
     Dates: start: 20230915, end: 202310

REACTIONS (10)
  - Asthenia [Unknown]
  - Blood sodium decreased [Unknown]
  - Haemoglobin decreased [Unknown]
  - Ascites [Unknown]
  - Fatigue [Unknown]
  - Blood pressure increased [Unknown]
  - Nausea [Unknown]
  - Dyspepsia [Unknown]
  - Feeling cold [Unknown]
  - Constipation [Unknown]

NARRATIVE: CASE EVENT DATE: 20230901
